FAERS Safety Report 15599764 (Version 1)
Quarter: 2018Q4

REPORT INFORMATION
  Report Type: Spontaneous
  Country: US (occurrence: US)
  Receive Date: 20181108
  Receipt Date: 20181108
  Transmission Date: 20190205
  Serious: No
  Sender: FDA-Public Use
  Company Number: US-ELI_LILLY_AND_COMPANY-US201811001718

PATIENT
  Sex: Female

DRUGS (2)
  1. GALCANEZUMAB [Suspect]
     Active Substance: GALCANEZUMAB
     Indication: TENSION HEADACHE
  2. GALCANEZUMAB [Suspect]
     Active Substance: GALCANEZUMAB
     Indication: MIGRAINE
     Dosage: 1 DF, UNKNOWN
     Route: 065
     Dates: start: 20181018

REACTIONS (1)
  - Headache [Recovering/Resolving]
